FAERS Safety Report 9768007 (Version 1)
Quarter: 2013Q4

REPORT INFORMATION
  Report Type: Spontaneous
  Country: US (occurrence: None)
  Receive Date: 20131217
  Receipt Date: 20131217
  Transmission Date: 20140711
  Serious: Yes (Hospitalization)
  Sender: FDA-Public Use
  Company Number: 2012BAX018044

PATIENT
  Sex: Female

DRUGS (2)
  1. GAMMAGARD LIQUID (IMMUNOGLOBULIN, NORMAL HUMAN) (SOLUTION FOR INFUSI [Suspect]
     Indication: PRODUCT USED FOR UNKNOWN INDICATION
     Dosage: INTRAVENOUS
  2. PRIVIGEN (IMMUNOGLOBULIN) [Suspect]
     Indication: PRODUCT USED FOR UNKNOWN INDICATION
     Dosage: INTRAVENOUS

REACTIONS (1)
  - Blood pressure increased [None]
